FAERS Safety Report 8553840-1 (Version None)
Quarter: 2012Q3

REPORT INFORMATION
  Report Type: 
  Country: None (occurrence: None)
  Receive Date: 20120731
  Receipt Date: 20120719
  Transmission Date: 20120928
  Serious: Yes (Other)
  Sender: FDA-Public Use
  Company Number: US-ELI_LILLY_AND_COMPANY-US201011006127

PATIENT
  Sex: Female

DRUGS (6)
  1. FORTEO [Suspect]
     Dosage: 20 UG, DAILY (1/D)
     Route: 065
  2. FORTEO [Suspect]
     Dosage: 20 UG, DAILY (1/D)
     Route: 065
  3. VITAMIN TAB [Concomitant]
  4. FORTEO [Suspect]
     Indication: OSTEOPOROSIS
     Dosage: 20 UG, DAILY (1/D)
     Route: 065
  5. FORTEO [Suspect]
     Dosage: 20 UG, QOD
     Route: 065
     Dates: start: 20101101
  6. FORTEO [Suspect]
     Dosage: 20 UG, QD
     Route: 065

REACTIONS (8)
  - MUSCLE SPASMS [None]
  - MALAISE [None]
  - FEELING ABNORMAL [None]
  - INAPPROPRIATE SCHEDULE OF DRUG ADMINISTRATION [None]
  - PALPITATIONS [None]
  - HEADACHE [None]
  - INSOMNIA [None]
  - ARTHROPATHY [None]
